FAERS Safety Report 9781101 (Version 1)
Quarter: 2013Q4

REPORT INFORMATION
  Report Type: Spontaneous
  Country: US (occurrence: None)
  Receive Date: 20131220
  Receipt Date: 20131220
  Transmission Date: 20140711
  Serious: Yes (Other)
  Sender: FDA-Public Use
  Company Number: 2013US008274

PATIENT
  Age: 44 Year
  Sex: Female
  Weight: 79.4 kg

DRUGS (3)
  1. HORIZANT [Suspect]
     Indication: PERIODIC LIMB MOVEMENT DISORDER
     Route: 048
     Dates: start: 201302
  2. AMBIEN [Concomitant]
  3. GABAPENTIN [Concomitant]

REACTIONS (3)
  - Sedation [None]
  - Activities of daily living impaired [None]
  - Impaired driving ability [None]
